FAERS Safety Report 7757360 (Version 2)
Quarter: 2013Q3

REPORT INFORMATION
  Report Type: Spontaneous
  Country: US (occurrence: None)
  Receive Date: 20101216
  Receipt Date: 20130802
  Transmission Date: 20140515
  Serious: Yes (Other)
  Sender: FDA-Public Use
  Company Number: OTH-SPN-2010007

PATIENT
  Age: 5 Month
  Sex: Male
  Weight: 1.6 kg

DRUGS (4)
  1. CARBAGLU (CARGLUMIC ACID) [Suspect]
     Indication: ACIDOSIS
     Dosage: 1 EVERY DAY
     Route: 048
     Dates: start: 20101119, end: 20101130
  2. PROPIMEX [Concomitant]
  3. LEVOCARNITINE [Concomitant]
  4. BUPHENYL [Concomitant]

REACTIONS (3)
  - Lethargy [None]
  - Ammonia increased [None]
  - Anaemia [None]
